FAERS Safety Report 18888777 (Version 1)
Quarter: 2021Q1

REPORT INFORMATION
  Report Type: Other
  Country: JP (occurrence: JP)
  Receive Date: 20210213
  Receipt Date: 20210213
  Transmission Date: 20210420
  Serious: Yes (Other)
  Sender: FDA-Public Use
  Company Number: JP-ROCHE-2762722

PATIENT

DRUGS (3)
  1. BEVACIZUMAB. [Suspect]
     Active Substance: BEVACIZUMAB
     Indication: RECTAL CANCER
     Dosage: ON DAYS 1 AND 15
     Route: 042
  2. TS?1 [Suspect]
     Active Substance: GIMERACIL\OTERACIL\TEGAFUR
     Indication: RECTAL CANCER
     Dosage: ON DAYS 1?5, 8?12, 15?19, AND 22?26
     Route: 048
  3. OXALIPLATIN. [Suspect]
     Active Substance: OXALIPLATIN
     Indication: RECTAL CANCER
     Dosage: ON DAYS 1, 8, 15, AND 22
     Route: 042

REACTIONS (13)
  - Urinary fistula [Unknown]
  - Stoma complication [Unknown]
  - Aspartate aminotransferase increased [Unknown]
  - Rectal perforation [Unknown]
  - Wound infection [Unknown]
  - Cerebrovascular accident [Unknown]
  - Leukopenia [Unknown]
  - Decreased appetite [Unknown]
  - Vomiting [Unknown]
  - Diarrhoea [Unknown]
  - Ileus [Unknown]
  - Neutropenia [Unknown]
  - Alanine aminotransferase increased [Unknown]
